FAERS Safety Report 5940748-0 (Version None)
Quarter: 2008Q4

REPORT INFORMATION
  Report Type: 
  Country: None (occurrence: None)
  Receive Date: 20081103
  Receipt Date: 20081103
  Transmission Date: 20090506
  Serious: Yes (Hospitalization)
  Sender: FDA-Public Use
  Company Number: None

PATIENT
  Age: 77 Year
  Sex: Male
  Weight: 61.5 kg

DRUGS (2)
  1. ASPIRIN [Suspect]
     Indication: DRUG USE FOR UNKNOWN INDICATION
     Dosage: 81 MG BID PO
     Route: 048
     Dates: end: 20080923
  2. SULINDAC [Suspect]
     Indication: ARTHRITIS
     Dosage: 200 MG BID PO
     Route: 048
     Dates: start: 20080125, end: 20080923

REACTIONS (9)
  - ASTHENIA [None]
  - BLOOD PRESSURE DECREASED [None]
  - DIVERTICULUM [None]
  - GASTRIC HAEMORRHAGE [None]
  - HAEMOGLOBIN DECREASED [None]
  - PALLOR [None]
  - PAROTITIS [None]
  - PROCEDURAL COMPLICATION [None]
  - RECTAL HAEMORRHAGE [None]
